FAERS Safety Report 5672768-8 (Version None)
Quarter: 2008Q1

REPORT INFORMATION
  Report Type: 
  Country: None (occurrence: None)
  Receive Date: 20080319
  Receipt Date: 20070726
  Transmission Date: 20080703
  Serious: No
  Sender: FDA-Public Use
  Company Number: US-KINGPHARMUSA00001-K200700946

PATIENT

DRUGS (2)
  1. ALTACE [Suspect]
     Route: 048
     Dates: start: 20050101
  2. UNSPECIFIED MEDICATIONS [Concomitant]

REACTIONS (1)
  - LABORATORY TEST ABNORMAL [None]
